FAERS Safety Report 9719206 (Version 1)
Quarter: 2013Q4

REPORT INFORMATION
  Report Type: Spontaneous
  Country: US (occurrence: US)
  Receive Date: 20131127
  Receipt Date: 20131127
  Transmission Date: 20140711
  Serious: Yes (Hospitalization)
  Sender: FDA-Public Use
  Company Number: PHEH2013US024334

PATIENT
  Sex: Female

DRUGS (8)
  1. VALSARTAN [Suspect]
  2. LOSARTAN POTASSIUM [Suspect]
  3. ENALAPRIL [Suspect]
  4. METOPROLOL [Concomitant]
  5. ATENOLOL [Concomitant]
  6. POTASSIUM [Concomitant]
  7. KLOR-CON [Concomitant]
  8. DIOVAN HCT [Concomitant]
     Dosage: UNK UKN, UNK

REACTIONS (7)
  - Heart rate irregular [Unknown]
  - Palpitations [Unknown]
  - Hypersensitivity [Unknown]
  - Metabolic disorder [Unknown]
  - Erosive oesophagitis [Unknown]
  - General physical health deterioration [Unknown]
  - Abdominal discomfort [Unknown]
